FAERS Safety Report 4799872-0 (Version None)
Quarter: 2005Q4

REPORT INFORMATION
  Report Type: 
  Country: None (occurrence: None)
  Receive Date: 20051013
  Receipt Date: 20051005
  Transmission Date: 20060501
  Serious: Yes (Other)
  Sender: FDA-Public Use
  Company Number: 2005137754

PATIENT
  Sex: Male

DRUGS (2)
  1. UNISOM [Suspect]
     Dosage: 1 WHOLE BOX ONCE, ORAL
     Route: 048
     Dates: start: 20051004, end: 20051004
  2. OLANZAPINE [Concomitant]

REACTIONS (3)
  - INTENTIONAL DRUG MISUSE [None]
  - OVERDOSE [None]
  - SOMNOLENCE [None]
